FAERS Safety Report 23304782 (Version 2)
Quarter: 2024Q3

REPORT INFORMATION
  Report Type: Spontaneous
  Country: JP (occurrence: JP)
  Receive Date: 20231218
  Receipt Date: 20240816
  Transmission Date: 20241017
  Serious: Yes (Other)
  Sender: ABBVIE
  Company Number: JP-ABBVIE-5536145

PATIENT

DRUGS (1)
  1. VENCLEXTA [Suspect]
     Active Substance: VENETOCLAX
     Indication: Acute myeloid leukaemia
     Route: 048

REACTIONS (19)
  - Pancytopenia [Unknown]
  - Vomiting [Unknown]
  - Infection [Unknown]
  - Dry mouth [Unknown]
  - Rash [Unknown]
  - Liver disorder [Unknown]
  - Nausea [Unknown]
  - Insomnia [Unknown]
  - Delirium [Unknown]
  - Constipation [Unknown]
  - Diarrhoea [Unknown]
  - Anaemia [Unknown]
  - Decreased appetite [Unknown]
  - Tumour lysis syndrome [Unknown]
  - Dry skin [Unknown]
  - Malaise [Unknown]
  - Febrile neutropenia [Unknown]
  - Stress [Unknown]
  - Pyrexia [Unknown]
